FAERS Safety Report 7407286-X (Version None)
Quarter: 2011Q2

REPORT INFORMATION
  Report Type: 
  Country: None (occurrence: None)
  Receive Date: 20110411
  Receipt Date: 20110330
  Transmission Date: 20111010
  Serious: Yes (Other)
  Sender: FDA-Public Use
  Company Number: PHHY2010ZA59759

PATIENT
  Age: 79 Year
  Sex: Female

DRUGS (3)
  1. CIPRIL [Concomitant]
  2. ELTROXIN [Concomitant]
  3. ACLASTA [Suspect]
     Dosage: 5 MG/ 100 ML

REACTIONS (6)
  - MYALGIA [None]
  - BURNING SENSATION [None]
  - HYPOTENSION [None]
  - FEELING ABNORMAL [None]
  - INFLUENZA LIKE ILLNESS [None]
  - BLOOD POTASSIUM ABNORMAL [None]
